FAERS Safety Report 19614773 (Version 1)
Quarter: 2021Q3

REPORT INFORMATION
  Report Type: Spontaneous
  Country: DE (occurrence: DE)
  Receive Date: 20210727
  Receipt Date: 20210727
  Transmission Date: 20211014
  Serious: Yes (Hospitalization, Other)
  Sender: FDA-Public Use
  Company Number: DE-PFIZER INC-2021873799

PATIENT
  Age: 39 Year
  Sex: Female

DRUGS (5)
  1. SERTRALINE HCL [Suspect]
     Active Substance: SERTRALINE HYDROCHLORIDE
     Dosage: 50 MG, 1X/DAY
     Dates: start: 2019
  2. OXYCODON [Suspect]
     Active Substance: OXYCODONE
     Dosage: 15 MG, 1X/DAY
     Dates: start: 2019
  3. TAPENTADOL [Suspect]
     Active Substance: TAPENTADOL
     Dosage: DAILY DOSE BETWEEN 100 AND 200 MG, AT TIME OF AE 100 MG
     Dates: start: 20210116, end: 20210207
  4. PREGABALIN. [Concomitant]
     Active Substance: PREGABALIN
     Dosage: 900 MG, 1X/DAY
     Dates: start: 2017
  5. OXYCODON [Suspect]
     Active Substance: OXYCODONE
     Dosage: 30 MG, 1X/DAY
     Dates: end: 20210115

REACTIONS (12)
  - Muscle spasms [Recovered/Resolved]
  - Blood creatine phosphokinase increased [Unknown]
  - Seizure [Recovered/Resolved]
  - Disorientation [Recovered/Resolved]
  - Amnestic disorder [Recovered/Resolved]
  - Blood lactic acid increased [Unknown]
  - Platelet count decreased [Unknown]
  - CSF protein increased [Unknown]
  - Myoclonic epilepsy [Recovered/Resolved]
  - Vision blurred [Recovered/Resolved]
  - Muscle twitching [Not Recovered/Not Resolved]
  - Gaze palsy [Recovered/Resolved]

NARRATIVE: CASE EVENT DATE: 202101
